FAERS Safety Report 10300106 (Version 2)
Quarter: 2014Q3

REPORT INFORMATION
  Report Type: Spontaneous
  Country: US (occurrence: US)
  Receive Date: 20140711
  Receipt Date: 20140711
  Transmission Date: 20150326
  Serious: No
  Sender: FDA-Public Use
  Company Number: US-GILEAD-2013-0082834

PATIENT
  Sex: Female

DRUGS (2)
  1. LETAIRIS [Suspect]
     Active Substance: AMBRISENTAN
     Indication: PULMONARY ARTERIAL HYPERTENSION
     Dosage: 10 MG, QD
     Route: 048
     Dates: start: 20130818
  2. SILDENAFIL                         /01367502/ [Concomitant]

REACTIONS (3)
  - Feeling abnormal [Recovered/Resolved]
  - Mucosal discolouration [Unknown]
  - Nocturnal dyspnoea [Unknown]
